FAERS Safety Report 11785892 (Version 1)
Quarter: 2015Q4

REPORT INFORMATION
  Report Type: Spontaneous
  Country: JP (occurrence: JP)
  Receive Date: 20151130
  Receipt Date: 20151130
  Transmission Date: 20160305
  Serious: Yes (Other)
  Sender: FDA-Public Use
  Company Number: JP-PFIZER INC-2015376224

PATIENT
  Age: 71 Year
  Sex: Male
  Weight: 33.6 kg

DRUGS (8)
  1. VFEND [Suspect]
     Active Substance: VORICONAZOLE
     Dosage: 200 MG, 2X/DAY AFTER MEAL
     Route: 048
     Dates: start: 20150317, end: 20151101
  2. NEXIUM [Concomitant]
     Active Substance: ESOMEPRAZOLE MAGNESIUM
     Dosage: 20 MG, 1X/DAY
     Route: 048
     Dates: start: 20151024
  3. VFEND [Suspect]
     Active Substance: VORICONAZOLE
     Indication: ASPERGILLUS INFECTION
     Dosage: 300 MG, 2X/DAY
     Route: 048
     Dates: start: 20150212, end: 20150316
  4. VFEND [Suspect]
     Active Substance: VORICONAZOLE
     Dosage: 100 MG, 2X/DAY
     Route: 048
     Dates: start: 20151102
  5. SULBACILLIN [Concomitant]
     Active Substance: AMPICILLIN SODIUM\SULBACTAM SODIUM
     Dosage: 1.5 G, 4X/DAY
     Route: 042
     Dates: start: 20151021, end: 20151103
  6. LASIX [Concomitant]
     Active Substance: FUROSEMIDE
     Dosage: 10 MG, 1X/DAY
     Route: 048
     Dates: start: 20140925
  7. GASTER [Concomitant]
     Active Substance: FAMOTIDINE
     Dosage: 40 MG, 2X/DAY
     Route: 048
     Dates: start: 20150801
  8. L CARTIN FF [Concomitant]
     Active Substance: LEVOCARNITINE
     Dosage: 2 DF, 2X/DAY
     Route: 048
     Dates: start: 20151008

REACTIONS (1)
  - Drug level increased [Recovered/Resolved]

NARRATIVE: CASE EVENT DATE: 20151024
